FAERS Safety Report 7694070-5 (Version None)
Quarter: 2011Q3

REPORT INFORMATION
  Report Type: 
  Country: None (occurrence: None)
  Receive Date: 20110819
  Receipt Date: 20110815
  Transmission Date: 20111222
  Serious: No
  Sender: FDA-Public Use
  Company Number: US-PFIZER INC-2011187381

PATIENT
  Sex: Female
  Weight: 74.376 kg

DRUGS (5)
  1. IBUPROFEN [Concomitant]
     Indication: PAIN
     Dosage: UNK
  2. METFORMIN [Concomitant]
     Indication: TYPE 2 DIABETES MELLITUS
     Dosage: 1000 MG, 1X/DAY
  3. ASPIRIN [Concomitant]
     Dosage: UNK
  4. GLIPIZIDE [Suspect]
     Indication: TYPE 2 DIABETES MELLITUS
     Dosage: 5 MG, 2X/DAY
     Route: 048
     Dates: start: 20110721
  5. LEVOTHYROXINE [Concomitant]
     Indication: HYPERTHYROIDISM
     Dosage: UNK

REACTIONS (1)
  - VISION BLURRED [None]
